FAERS Safety Report 17350500 (Version 1)
Quarter: 2020Q1

REPORT INFORMATION
  Report Type: Spontaneous
  Country: US (occurrence: US)
  Receive Date: 20200130
  Receipt Date: 20200130
  Transmission Date: 20200409
  Serious: No
  Sender: FDA-Public Use
  Company Number: US-BAYER-2020-015895

PATIENT
  Age: 73 Year
  Sex: Female

DRUGS (3)
  1. MILK OF MAGNESIA CHERRY [Suspect]
     Active Substance: MAGNESIUM HYDROXIDE
     Dosage: UNK
  2. MIRALAX [Suspect]
     Active Substance: POLYETHYLENE GLYCOL 3350
     Dosage: UNK
     Route: 065
  3. MILK OF MAGNESIA CHERRY [Suspect]
     Active Substance: MAGNESIUM HYDROXIDE
     Dosage: UNK
     Route: 065

REACTIONS (1)
  - Nausea [Unknown]
